FAERS Safety Report 8906071 (Version 1)
Quarter: 2012Q4

REPORT INFORMATION
  Report Type: Spontaneous
  Country: US (occurrence: None)
  Receive Date: 20121106
  Receipt Date: 20121106
  Transmission Date: 20130627
  Serious: Yes (Hospitalization)
  Sender: FDA-Public Use
  Company Number: 2012-2261

PATIENT
  Age: 3 Year
  Sex: Female
  Weight: 12.7 kg

DRUGS (6)
  1. INCRELEX [Suspect]
     Indication: RETT^S DISORDER
     Dosage: (1.5 MG, 2 IN 1 D)
     Route: 051
     Dates: start: 20120207
  2. INCRELEX [Suspect]
     Indication: DRUG USE FOR UNAPPROVED  INDICATION
     Dosage: (1.5 MG, 2 IN 1 D)
     Route: 051
     Dates: start: 20120207
  3. LEVETIRACETAM [Suspect]
     Indication: ABNORMAL EEG
  4. LEVETIRACETAM [Suspect]
  5. MIRALAX (MACROGOL) [Concomitant]
  6. COQ10 (UBIDECARENONE) [Concomitant]

REACTIONS (1)
  - Complex partial seizures [None]
